FAERS Safety Report 8607936 (Version 2)
Quarter: 2013Q2

REPORT INFORMATION
  Report Type: Spontaneous
  Country: US (occurrence: US)
  Receive Date: 20120611
  Receipt Date: 20130617
  Transmission Date: 20140414
  Serious: Yes (Other)
  Sender: FDA-Public Use
  Company Number: US-ASTRAZENECA-2012SE35301

PATIENT
  Sex: Female

DRUGS (6)
  1. NEXIUM [Suspect]
     Route: 048
  2. NEXIUM [Suspect]
     Dosage: ONCE
     Route: 048
     Dates: start: 2005, end: 2005
  3. TUMS [Concomitant]
  4. ALKA-SELTZER [Concomitant]
  5. MILK OF MAGNESIA [Concomitant]
  6. PEPTO-BISMOL [Concomitant]

REACTIONS (13)
  - Neoplasm malignant [Unknown]
  - Osteoporosis [Unknown]
  - Ankle fracture [Unknown]
  - Carpal tunnel syndrome [Unknown]
  - Panic attack [Unknown]
  - Anxiety [Unknown]
  - Schizophrenia [Unknown]
  - Bipolar disorder [Unknown]
  - Poor quality sleep [Unknown]
  - Angina pectoris [Unknown]
  - Arthritis [Unknown]
  - Diabetes mellitus [Unknown]
  - Multiple fractures [Unknown]
